FAERS Safety Report 25854872 (Version 1)
Quarter: 2025Q3

REPORT INFORMATION
  Report Type: Spontaneous
  Country: US (occurrence: US)
  Receive Date: 20250927
  Receipt Date: 20250927
  Transmission Date: 20251020
  Serious: No
  Sender: SANOFI AVENTIS
  Company Number: US-SA-2025SA284562

PATIENT
  Age: 65 Year
  Sex: Female
  Weight: 113.64 kg

DRUGS (4)
  1. DUPIXENT [Suspect]
     Active Substance: DUPILUMAB
     Indication: Dermatitis atopic
     Dosage: 300 MG, QOW
     Route: 058
  2. PREGABALIN [Suspect]
     Active Substance: PREGABALIN
     Indication: Pain
  3. PREGABALIN [Suspect]
     Active Substance: PREGABALIN
  4. BOTOX [Concomitant]
     Active Substance: ONABOTULINUMTOXINA

REACTIONS (6)
  - Fall [Recovering/Resolving]
  - Contusion [Recovering/Resolving]
  - Wrist fracture [Recovering/Resolving]
  - Pain [Recovering/Resolving]
  - Weight increased [Recovering/Resolving]
  - Dermatitis atopic [Recovering/Resolving]

NARRATIVE: CASE EVENT DATE: 20250901
